FAERS Safety Report 6290162-6 (Version None)
Quarter: 2009Q3

REPORT INFORMATION
  Report Type: 
  Country: None (occurrence: None)
  Receive Date: 20090728
  Receipt Date: 20090728
  Transmission Date: 20100115
  Serious: Yes (Hospitalization)
  Sender: FDA-Public Use
  Company Number: None

PATIENT
  Age: 37 Year
  Sex: Female
  Weight: 68.0396 kg

DRUGS (1)
  1. KEPPRA [Suspect]
     Indication: COMPLEX PARTIAL SEIZURES
     Dosage: 750MG. 2X PER DAY
     Dates: start: 20021115, end: 20081207

REACTIONS (7)
  - BIPOLAR DISORDER [None]
  - CONVULSION [None]
  - HALLUCINATIONS, MIXED [None]
  - LOSS OF EMPLOYMENT [None]
  - PARENT-CHILD PROBLEM [None]
  - STRESS [None]
  - THINKING ABNORMAL [None]
